FAERS Safety Report 17002085 (Version 1)
Quarter: 2019Q4

REPORT INFORMATION
  Report Type: Spontaneous
  Country: US (occurrence: US)
  Receive Date: 20191106
  Receipt Date: 20191106
  Transmission Date: 20200122
  Serious: No
  Sender: FDA-Public Use
  Company Number: US-JNJFOC-20191101651

PATIENT
  Age: 67 Year
  Sex: Female
  Weight: 65.38 kg

DRUGS (1)
  1. MENS ROGAINE EXTRA STRENGTH [Suspect]
     Active Substance: MINOXIDIL
     Indication: ALOPECIA
     Dosage: FOLLOWED THE INSTRUCTION ONCE A DAY?PRODUCT LAST ADMINISTERED ON 20/JUN/2018
     Route: 061
     Dates: start: 20171031

REACTIONS (4)
  - Product use issue [Unknown]
  - Off label use [Unknown]
  - Hair growth abnormal [Recovering/Resolving]
  - Alopecia [Recovering/Resolving]

NARRATIVE: CASE EVENT DATE: 20171031
